FAERS Safety Report 23506329 (Version 1)
Quarter: 2024Q1

REPORT INFORMATION
  Report Type: Spontaneous
  Country: US (occurrence: US)
  Receive Date: 20240209
  Receipt Date: 20240209
  Transmission Date: 20240409
  Serious: No
  Sender: FDA-Public Use
  Company Number: US-GLENMARK PHARMACEUTICALS-2023GMK085473

PATIENT

DRUGS (2)
  1. ADAPALENE [Suspect]
     Active Substance: ADAPALENE
     Indication: Acne
     Dosage: UNK, 2 TIMES A WEEK AND THEN WENT TO 3 TIMES A WEEK.
     Route: 065
     Dates: start: 20230910
  2. ADAPALENE [Suspect]
     Active Substance: ADAPALENE
     Indication: Skin wrinkling

REACTIONS (6)
  - Skin discolouration [Recovering/Resolving]
  - Inappropriate schedule of product administration [Unknown]
  - Product use in unapproved indication [Unknown]
  - Skin exfoliation [Recovering/Resolving]
  - Burning sensation [Recovering/Resolving]
  - Pruritus [Recovered/Resolved]

NARRATIVE: CASE EVENT DATE: 20230917
